FAERS Safety Report 6663535-7 (Version None)
Quarter: 2010Q2

REPORT INFORMATION
  Report Type: 
  Country: None (occurrence: None)
  Receive Date: 20100401
  Receipt Date: 20100324
  Transmission Date: 20101027
  Serious: Yes (Hospitalization)
  Sender: FDA-Public Use
  Company Number: JP-PFIZER INC-2010038635

PATIENT
  Age: 79 Year
  Sex: Female
  Weight: 47 kg

DRUGS (6)
  1. SUNITINIB MALATE [Suspect]
     Indication: GASTROINTESTINAL STROMAL TUMOUR
     Dosage: 37.5 MG, 1X/DAY
     Route: 048
     Dates: start: 20091023
  2. MAGNESIUM OXIDE [Concomitant]
     Indication: CONSTIPATION
     Route: 048
  3. ZANTAC [Concomitant]
     Dosage: UNK
     Route: 048
     Dates: end: 20091101
  4. MARZULENE S [Concomitant]
     Dosage: UNK
     Route: 048
  5. LANSOPRAZOLE [Concomitant]
     Dosage: UNK
     Route: 048
     Dates: start: 20091106
  6. SELTOUCH [Concomitant]
     Indication: BACK PAIN
     Route: 062
     Dates: start: 20091106, end: 20091204

REACTIONS (2)
  - CHOLANGITIS SUPPURATIVE [None]
  - PALMAR-PLANTAR ERYTHRODYSAESTHESIA SYNDROME [None]
